FAERS Safety Report 15964505 (Version 1)
Quarter: 2019Q1

REPORT INFORMATION
  Report Type: Spontaneous
  Country: US (occurrence: US)
  Receive Date: 20190215
  Receipt Date: 20190215
  Transmission Date: 20190417
  Serious: Yes (Other)
  Sender: FDA-Public Use
  Company Number: US-AMCO LTD-GSH201902-000260

PATIENT
  Age: 7 Year
  Sex: Male
  Weight: 39.04 kg

DRUGS (9)
  1. ZIPRASIDONE HCI [Suspect]
     Active Substance: ZIPRASIDONE HYDROCHLORIDE
     Indication: OPPOSITIONAL DEFIANT DISORDER
  2. ZIPRASIDONE. [Concomitant]
     Active Substance: ZIPRASIDONE
     Indication: ANGER
  3. ZIPRASIDONE. [Concomitant]
     Active Substance: ZIPRASIDONE
     Indication: DISRUPTIVE MOOD DYSREGULATION DISORDER
  4. ZIPRASIDONE. [Concomitant]
     Active Substance: ZIPRASIDONE
     Indication: OPPOSITIONAL DEFIANT DISORDER
  5. CLONIDINE TABLET [Suspect]
     Active Substance: CLONIDINE
     Indication: ATTENTION DEFICIT/HYPERACTIVITY DISORDER
  6. CLONIDINE TABLET [Suspect]
     Active Substance: CLONIDINE
     Indication: ANXIETY
     Dosage: BY MOUTH
  7. ZIPRASIDONE HCI [Suspect]
     Active Substance: ZIPRASIDONE HYDROCHLORIDE
     Indication: DISRUPTIVE MOOD DYSREGULATION DISORDER
  8. VYVANSE [Suspect]
     Active Substance: LISDEXAMFETAMINE DIMESYLATE
     Indication: ATTENTION DEFICIT/HYPERACTIVITY DISORDER
     Route: 048
  9. ZIPRASIDONE HCI [Suspect]
     Active Substance: ZIPRASIDONE HYDROCHLORIDE
     Indication: ANGER
     Route: 048

REACTIONS (9)
  - Trichotillomania [Unknown]
  - Incorrect dose administered [Unknown]
  - Alopecia [Unknown]
  - Weight increased [Unknown]
  - Provisional tic disorder [Unknown]
  - Dyskinesia [Unknown]
  - Wrong technique in product usage process [Unknown]
  - Muscle spasticity [Unknown]
  - Inappropriate affect [Unknown]
